FAERS Safety Report 5765909-5 (Version None)
Quarter: 2008Q2

REPORT INFORMATION
  Report Type: 
  Country: None (occurrence: None)
  Receive Date: 20080611
  Receipt Date: 20070509
  Transmission Date: 20081010
  Serious: Yes (Hospitalization)
  Sender: FDA-Public Use
  Company Number: US-BRISTOL-MYERS SQUIBB COMPANY-13789680

PATIENT
  Age: 88 Year
  Sex: Female

DRUGS (8)
  1. SINEMET [Suspect]
  2. RISPERDAL [Suspect]
  3. ELDEPRYL [Concomitant]
  4. PREVACID [Concomitant]
  5. VIOXX [Concomitant]
  6. ZESTRIL [Concomitant]
  7. AMANTADINE HCL [Concomitant]
  8. ROFECOXIB [Concomitant]

REACTIONS (5)
  - CONFUSIONAL STATE [None]
  - DRUG INTOLERANCE [None]
  - HALLUCINATION [None]
  - MENTAL STATUS CHANGES [None]
  - URINARY TRACT INFECTION [None]
